FAERS Safety Report 5272500-6 (Version None)
Quarter: 2007Q1

REPORT INFORMATION
  Report Type: 
  Country: None (occurrence: None)
  Receive Date: 20070322
  Receipt Date: 20060510
  Transmission Date: 20070707
  Serious: No
  Sender: FDA-Public Use
  Company Number: US-BRISTOL-MYERS SQUIBB COMPANY-13373402

PATIENT
  Age: 58 Year
  Sex: Female
  Weight: 41 kg

DRUGS (14)
  1. KENALOG [Suspect]
     Indication: CARPAL TUNNEL SYNDROME
     Dates: start: 20060508
  2. LIDOCAINE [Concomitant]
     Dosage: GIVEN PRIOR TO KENALOG INJECTION
     Dates: start: 20060508
  3. ZELNORM [Concomitant]
  4. FENTANYL TRANSDERMAL SYSTEM [Concomitant]
  5. LORAZEPAM [Concomitant]
  6. PROCRIT [Concomitant]
  7. ESTRACE [Concomitant]
     Route: 067
  8. IMITREX [Concomitant]
  9. MAXALT [Concomitant]
  10. DILAUDID [Concomitant]
  11. REGLAN [Concomitant]
  12. ZOFRAN [Concomitant]
  13. PHENERGAN HCL [Concomitant]
  14. EPINEPHRINE [Concomitant]

REACTIONS (5)
  - DIARRHOEA [None]
  - HOT FLUSH [None]
  - NAUSEA [None]
  - NIGHTMARE [None]
  - STOMACH DISCOMFORT [None]
